FAERS Safety Report 7057777-9 (Version None)
Quarter: 2010Q4

REPORT INFORMATION
  Report Type: 
  Country: None (occurrence: None)
  Receive Date: 20101022
  Receipt Date: 20101012
  Transmission Date: 20110411
  Serious: Yes (Disabling)
  Sender: FDA-Public Use
  Company Number: GB-PFIZER INC-2010102423

PATIENT
  Age: 77 Year
  Sex: Female
  Weight: 71 kg

DRUGS (8)
  1. NEURONTIN [Suspect]
     Indication: INTERVERTEBRAL DISC DISORDER
     Dosage: 300 MG, 4X/DAY
     Route: 048
     Dates: start: 20090224
  2. GABAPENTIN [Suspect]
     Dosage: UNK
     Route: 048
  3. AMIAS [Concomitant]
     Indication: MYOCARDIAL ISCHAEMIA
     Dosage: 8 MG, 1X/DAY
     Dates: start: 20080101
  4. LANSOPRAZOLE [Concomitant]
     Indication: MYOCARDIAL ISCHAEMIA
     Dosage: 15 MG, 1X/DAY
     Route: 048
     Dates: start: 20060101
  5. TAMBOCOR [Concomitant]
     Indication: MYOCARDIAL ISCHAEMIA
     Dosage: 50 MG, AS NEEDED
     Route: 048
     Dates: start: 20090108
  6. PLAVIX [Concomitant]
     Indication: MYOCARDIAL ISCHAEMIA
     Dosage: 75 MG, 1X/DAY
     Route: 048
     Dates: start: 20040101
  7. NU-SEALS [Concomitant]
     Indication: MYOCARDIAL ISCHAEMIA
     Dosage: 150 MG, 1X/DAY
     Route: 048
     Dates: start: 20010101
  8. LIPITOR [Concomitant]
     Indication: MYOCARDIAL ISCHAEMIA
     Dosage: 20 MG, 1X/DAY
     Route: 048
     Dates: start: 20010101

REACTIONS (5)
  - ASTHENIA [None]
  - DRUG INTOLERANCE [None]
  - HYPERHIDROSIS [None]
  - PRODUCT SUBSTITUTION ISSUE [None]
  - REFUSAL OF TREATMENT BY PATIENT [None]
